FAERS Safety Report 18675181 (Version 1)
Quarter: 2020Q4

REPORT INFORMATION
  Report Type: Spontaneous
  Country: US (occurrence: US)
  Receive Date: 20201224
  Receipt Date: 20201224
  Transmission Date: 20210114
  Serious: Yes (Death)
  Sender: FDA-Public Use
  Company Number: None

PATIENT
  Age: 91 Year
  Sex: Male

DRUGS (1)
  1. IMATINIB MES 100MG TAB [Suspect]
     Active Substance: IMATINIB MESYLATE
     Route: 048
     Dates: start: 201909, end: 20201221

REACTIONS (2)
  - Emergency care [None]
  - Hospice care [None]

NARRATIVE: CASE EVENT DATE: 20201221
